FAERS Safety Report 5383260-2 (Version None)
Quarter: 2007Q3

REPORT INFORMATION
  Report Type: 
  Country: None (occurrence: None)
  Receive Date: 20070710
  Receipt Date: 20070628
  Transmission Date: 20080115
  Serious: Yes (Other)
  Sender: FDA-Public Use
  Company Number: US-PFIZER INC-2007017066

PATIENT
  Sex: Female
  Weight: 83 kg

DRUGS (8)
  1. CHANTIX [Suspect]
     Indication: SMOKING CESSATION THERAPY
     Route: 048
     Dates: start: 20070101, end: 20070201
  2. CHANTIX [Suspect]
     Indication: TOBACCO USER
  3. ZOLOFT [Concomitant]
  4. LOW-OGESTREL-21 [Concomitant]
  5. PRAVASTATIN [Concomitant]
  6. MILK THISTLE [Concomitant]
  7. LEVOXYL [Concomitant]
  8. VICODIN [Concomitant]

REACTIONS (1)
  - DEPRESSION [None]
